FAERS Safety Report 7481006-5 (Version None)
Quarter: 2011Q2

REPORT INFORMATION
  Report Type: 
  Country: None (occurrence: None)
  Receive Date: 20110516
  Receipt Date: 20110509
  Transmission Date: 20111010
  Serious: Yes (Hospitalization)
  Sender: FDA-Public Use
  Company Number: BR-US-EMD SERONO, INC.-7058947

PATIENT
  Sex: Female

DRUGS (4)
  1. EUTHYROX [Concomitant]
  2. CLONAZEPAM [Concomitant]
  3. REBIF [Suspect]
     Indication: RELAPSING-REMITTING MULTIPLE SCLEROSIS
     Dates: start: 20100520
  4. MACRODANTIN [Concomitant]

REACTIONS (11)
  - MOOD ALTERED [None]
  - INJECTION SITE ERYTHEMA [None]
  - PAIN [None]
  - ANXIETY [None]
  - FATIGUE [None]
  - FALL [None]
  - URINARY TRACT INFECTION [None]
  - URINARY INCONTINENCE [None]
  - MALAISE [None]
  - HEADACHE [None]
  - ASTHENIA [None]
